FAERS Safety Report 23543091 (Version 1)
Quarter: 2024Q1

REPORT INFORMATION
  Report Type: Spontaneous
  Country: NP (occurrence: NP)
  Receive Date: 20240220
  Receipt Date: 20240220
  Transmission Date: 20240409
  Serious: Yes (Hospitalization, Other)
  Sender: FDA-Public Use
  Company Number: NP-Accord-407251

PATIENT
  Age: 43 Year
  Sex: Female

DRUGS (6)
  1. DEXMEDETOMIDINE HYDROCHLORIDE [Suspect]
     Active Substance: DEXMEDETOMIDINE HYDROCHLORIDE
     Indication: Maintenance of anaesthesia
  2. PROPOFOL [Concomitant]
     Active Substance: PROPOFOL
     Indication: Maintenance of anaesthesia
  3. ISOFLURANE [Concomitant]
     Active Substance: ISOFLURANE
     Indication: Maintenance of anaesthesia
     Dosage: MINIMUM ALVEOLAR CONCENTRATION (MAC) 0.6
  4. FENTANYL [Concomitant]
     Active Substance: FENTANYL\FENTANYL CITRATE
     Indication: Induction of anaesthesia
  5. VECURONIUM [Concomitant]
     Active Substance: VECURONIUM BROMIDE
     Indication: Induction of anaesthesia
  6. PROPOFOL [Concomitant]
     Active Substance: PROPOFOL
     Indication: Induction of anaesthesia
     Dosage: GRADED

REACTIONS (2)
  - Acute postoperative sialadenitis [Recovered/Resolved]
  - Upper airway obstruction [Recovered/Resolved]
